FAERS Safety Report 11202883 (Version 6)
Quarter: 2016Q3

REPORT INFORMATION
  Report Type: Report from Study
  Country: US (occurrence: US)
  Receive Date: 20150619
  Receipt Date: 20160901
  Transmission Date: 20161109
  Serious: Yes (Other)
  Sender: FDA-Public Use
  Company Number: US-ALEXION PHARMACEUTICALS INC.-A201502192

PATIENT
  Sex: Male

DRUGS (1)
  1. SOLIRIS [Suspect]
     Active Substance: ECULIZUMAB
     Indication: PAROXYSMAL NOCTURNAL HAEMOGLOBINURIA
     Dosage: UNK
     Route: 042
     Dates: end: 20150714

REACTIONS (12)
  - Urine output increased [Unknown]
  - Fatigue [Unknown]
  - Burning sensation [Recovering/Resolving]
  - Chromaturia [Recovering/Resolving]
  - Drug ineffective [Unknown]
  - Chromaturia [Unknown]
  - Malaise [Unknown]
  - Rhinorrhoea [Unknown]
  - White blood cell count abnormal [Unknown]
  - Myelodysplastic syndrome [Unknown]
  - Haemoglobin decreased [Recovering/Resolving]
  - Adverse drug reaction [Unknown]

NARRATIVE: CASE EVENT DATE: 20150519
